FAERS Safety Report 16359529 (Version 2)
Quarter: 2022Q1

REPORT INFORMATION
  Report Type: Spontaneous
  Country: FR (occurrence: FR)
  Receive Date: 20190528
  Receipt Date: 20220308
  Transmission Date: 20220424
  Serious: Yes (Life-Threatening)
  Sender: FDA-Public Use
  Company Number: None

PATIENT
  Age: 71 Year
  Sex: Female
  Weight: 105 kg

DRUGS (9)
  1. VALIUM [Suspect]
     Active Substance: DIAZEPAM
     Indication: Mixed anxiety and depressive disorder
     Dosage: ON 05/AUG/2018, RECEIVED MOST RECENT DOSE
     Route: 048
     Dates: start: 20180804, end: 20180805
  2. RISPERDAL [Suspect]
     Active Substance: RISPERIDONE
     Indication: Mixed anxiety and depressive disorder
     Dosage: ON 05/AUG/2018, RECEIVED MOST RECENT DOSE
     Route: 048
     Dates: start: 20180724, end: 20180805
  3. ANAFRANIL [Suspect]
     Active Substance: CLOMIPRAMINE HYDROCHLORIDE
     Indication: Mixed anxiety and depressive disorder
     Dosage: ON 05/AUG/2018, RECEIVED MOST RECENT DOSE OF CLOMIPRAMINE HYDROCHLORIDE.
     Route: 048
     Dates: start: 20180703, end: 20180805
  4. LAMOTRIGINE [Suspect]
     Active Substance: LAMOTRIGINE
     Indication: Mixed anxiety and depressive disorder
     Dosage: ON 05/AUG/2018, RECEIVED MOST RECENT DOSE OF LAMOTRIGINE.
     Route: 048
     Dates: start: 20180719, end: 20180805
  5. PRADAXA [Concomitant]
     Active Substance: DABIGATRAN ETEXILATE MESYLATE
  6. PERINDOPRIL ARGININE [Concomitant]
     Active Substance: PERINDOPRIL ARGININE
  7. ATORVASTATIN [Concomitant]
     Active Substance: ATORVASTATIN
  8. AMIODARONE [Concomitant]
     Active Substance: AMIODARONE
  9. PANTOPRAZOLE [Concomitant]
     Active Substance: PANTOPRAZOLE

REACTIONS (1)
  - Neuroleptic malignant syndrome [Recovered/Resolved]

NARRATIVE: CASE EVENT DATE: 20180805
